FAERS Safety Report 16796435 (Version 3)
Quarter: 2020Q1

REPORT INFORMATION
  Report Type: Spontaneous
  Country: US (occurrence: US)
  Receive Date: 20190911
  Receipt Date: 20200212
  Transmission Date: 20200409
  Serious: No
  Sender: FDA-Public Use
  Company Number: US-SA-2019SA251735

PATIENT
  Age: 50 Year
  Sex: Male

DRUGS (2)
  1. DUPIXENT [Suspect]
     Active Substance: DUPILUMAB
     Dosage: 300 MG, QOW
     Route: 058
     Dates: start: 201907
  2. DUPIXENT [Suspect]
     Active Substance: DUPILUMAB
     Indication: PRODUCT USED FOR UNKNOWN INDICATION
     Dosage: 600 MG, 1X
     Route: 058
     Dates: start: 201907, end: 201907

REACTIONS (4)
  - Therapeutic response shortened [Unknown]
  - Rash [Unknown]
  - Drug ineffective [Unknown]
  - Hip surgery [Unknown]

NARRATIVE: CASE EVENT DATE: 201909
